FAERS Safety Report 4349673-2 (Version None)
Quarter: 2004Q1

REPORT INFORMATION
  Report Type: 
  Country: None (occurrence: None)
  Receive Date: 20040329
  Receipt Date: 20040211
  Transmission Date: 20041129
  Serious: No
  Sender: FDA-Public Use
  Company Number: USA030127403

PATIENT
  Age: 15 Year
  Sex: Male
  Weight: 77 kg

DRUGS (1)
  1. STRATTERA [Suspect]
     Indication: ATTENTION DEFICIT/HYPERACTIVITY DISORDER
     Dosage: 180 MG/DAY
     Dates: start: 20030126

REACTIONS (15)
  - AGITATION [None]
  - CYSTITIS [None]
  - DECREASED APPETITE [None]
  - DIZZINESS [None]
  - DYSPNOEA EXERTIONAL [None]
  - EDUCATIONAL PROBLEM [None]
  - EXPRESSIVE LANGUAGE DISORDER [None]
  - FATIGUE [None]
  - HEARING IMPAIRED [None]
  - IRRITABILITY [None]
  - MEMORY IMPAIRMENT [None]
  - PRESCRIBED OVERDOSE [None]
  - RASH [None]
  - SELF ESTEEM DECREASED [None]
  - WEIGHT DECREASED [None]
